FAERS Safety Report 5446499-3 (Version None)
Quarter: 2007Q3

REPORT INFORMATION
  Report Type: 
  Country: None (occurrence: None)
  Receive Date: 20070907
  Receipt Date: 20070829
  Transmission Date: 20080115
  Serious: Yes (Other)
  Sender: FDA-Public Use
  Company Number: PHEH2007US11805

PATIENT
  Age: 77 Year
  Sex: Female

DRUGS (3)
  1. MIACALCIN [Suspect]
     Indication: OSTEOPOROSIS
  2. CALCIUM [Concomitant]
  3. VITAMIN D3 [Concomitant]

REACTIONS (2)
  - CARDIAC DISORDER [None]
  - NAUSEA [None]
